FAERS Safety Report 10187733 (Version 1)
Quarter: 2014Q2

REPORT INFORMATION
  Report Type: Spontaneous
  Country: US (occurrence: US)
  Receive Date: 20140522
  Receipt Date: 20140522
  Transmission Date: 20141212
  Serious: No
  Sender: FDA-Public Use
  Company Number: US-SANOFI-AVENTIS-2013SA087198

PATIENT
  Age: 49 Year
  Sex: Male

DRUGS (2)
  1. SOLOSTAR [Suspect]
     Indication: TYPE 2 DIABETES MELLITUS
     Dosage: TAKEN FROM : 18 MONTHS AGO
  2. LANTUS SOLOSTAR [Suspect]
     Indication: TYPE 2 DIABETES MELLITUS
     Dosage: TAKEN FROM : 18 MONTHS AGO DOSE:28 UNIT(S)
     Route: 051

REACTIONS (3)
  - Injury associated with device [Unknown]
  - Injury [Unknown]
  - Injection site pain [Unknown]
